FAERS Safety Report 5805841-1 (Version None)
Quarter: 2008Q3

REPORT INFORMATION
  Report Type: 
  Country: None (occurrence: None)
  Receive Date: 20080702
  Receipt Date: 20070809
  Transmission Date: 20090109
  Serious: Yes (Other)
  Sender: FDA-Public Use
  Company Number: 2007-BP-18909BP

PATIENT
  Age: 76 Year
  Sex: Female

DRUGS (2)
  1. MIRAPEX [Suspect]
     Indication: RESTLESS LEGS SYNDROME
     Dosage: 0.125 MG (0.125 MG,1 IN 1 D,),PO
     Route: 048
     Dates: start: 20070601, end: 20070601
  2. BENAZEPRIL HCL [Concomitant]

REACTIONS (3)
  - FEELING HOT [None]
  - HYPERHIDROSIS [None]
  - LOSS OF CONSCIOUSNESS [None]
